FAERS Safety Report 6079439-7 (Version None)
Quarter: 2009Q1

REPORT INFORMATION
  Report Type: 
  Country: None (occurrence: None)
  Receive Date: 20090216
  Receipt Date: 20090206
  Transmission Date: 20090719
  Serious: Yes (Other)
  Sender: FDA-Public Use
  Company Number: PHEH2009US01564

PATIENT
  Age: 45 Year
  Sex: Female
  Weight: 61.224 kg

DRUGS (1)
  1. RECLAST [Suspect]
     Indication: OSTEOPOROSIS
     Dosage: 5 MG, ONCE/SINGLE
     Route: 042
     Dates: start: 20090130, end: 20090130

REACTIONS (8)
  - ARTHRALGIA [None]
  - JOINT SWELLING [None]
  - MALAISE [None]
  - MYALGIA [None]
  - OCULAR HYPERAEMIA [None]
  - PAIN [None]
  - PHOTOSENSITIVITY REACTION [None]
  - PYREXIA [None]
